FAERS Safety Report 9070962 (Version 1)
Quarter: 2013Q1

REPORT INFORMATION
  Report Type: Report from Study
  Country: JP (occurrence: JP)
  Receive Date: 20130129
  Receipt Date: 20130129
  Transmission Date: 20140127
  Serious: Yes (Other)
  Sender: FDA-Public Use
  Company Number: JP-GLAXOSMITHKLINE-B0860264A

PATIENT
  Age: 32 None
  Sex: Female
  Weight: 46 kg

DRUGS (4)
  1. ARIXTRA [Suspect]
     Indication: THROMBOSIS PROPHYLAXIS
     Dosage: 2.5MG PER DAY
     Route: 058
     Dates: start: 20090114, end: 20090118
  2. CEFAMEZIN [Concomitant]
     Indication: PROPHYLAXIS
  3. SLOW-FE [Concomitant]
     Indication: ANAEMIA
     Route: 048
  4. LOXONIN [Concomitant]
     Indication: PAIN
     Route: 048

REACTIONS (6)
  - Haematoma infection [Recovered/Resolved]
  - Post procedural haematoma [Recovered/Resolved]
  - Anaemia [Recovered/Resolved]
  - Procedural pain [Recovered/Resolved]
  - Post procedural haematoma [Recovered/Resolved]
  - Oedema [Recovered/Resolved]
